FAERS Safety Report 6720559-9 (Version None)
Quarter: 2010Q2

REPORT INFORMATION
  Report Type: 
  Country: None (occurrence: None)
  Receive Date: 20100511
  Receipt Date: 20100511
  Transmission Date: 20101027
  Serious: Yes (Other)
  Sender: FDA-Public Use
  Company Number: None

PATIENT
  Age: 89 Year
  Sex: Female
  Weight: 68.0396 kg

DRUGS (1)
  1. TAMSULOSIN HCL [Suspect]
     Indication: HYPERSENSITIVITY
     Dosage: 0.4 MG ONCE DAY ORAL
     Route: 048
     Dates: start: 20100426

REACTIONS (2)
  - PRODUCT SUBSTITUTION ISSUE [None]
  - URTICARIA [None]
